FAERS Safety Report 5011890-6 (Version None)
Quarter: 2006Q2

REPORT INFORMATION
  Report Type: 
  Country: None (occurrence: None)
  Receive Date: 20060524
  Receipt Date: 20060524
  Transmission Date: 20061013
  Serious: Yes (Hospitalization)
  Sender: FDA-Public Use
  Company Number: None

PATIENT
  Age: 71 Year
  Sex: Male
  Weight: 101.4 kg

DRUGS (2)
  1. SIMVASTATIN [Suspect]
     Dosage: 80MG  1 QHS  PO
     Route: 048
     Dates: start: 20051028
  2. GEMFIBROZIL [Suspect]
     Dosage: 600 MG   1/2 BID   PO
     Route: 048
     Dates: start: 20051222

REACTIONS (3)
  - ABASIA [None]
  - RENAL FAILURE ACUTE [None]
  - RHABDOMYOLYSIS [None]
